FAERS Safety Report 5394881-5 (Version None)
Quarter: 2007Q3

REPORT INFORMATION
  Report Type: 
  Country: None (occurrence: None)
  Receive Date: 20070720
  Receipt Date: 20070622
  Transmission Date: 20080115
  Serious: Yes (Other)
  Sender: FDA-Public Use
  Company Number: 200707IM000261

PATIENT

DRUGS (3)
  1. ACTIMMUNE [Suspect]
     Indication: GLIOMA
     Dosage: QD, SUBCUTANEOUS
     Route: 058
  2. CYCLOPHOSPHAMIDE [Suspect]
     Indication: GLIOMA
     Dosage: 300 MG/M2, Q 21 DAYS, INTRAVENOUS
     Route: 042
  3. ACETAMINOPHEN [Concomitant]

REACTIONS (1)
  - LEUKOPENIA [None]
